FAERS Safety Report 9122049 (Version 1)
Quarter: 2013Q1

REPORT INFORMATION
  Report Type: Spontaneous
  Country: JP (occurrence: JP)
  Receive Date: 20130114
  Receipt Date: 20130114
  Transmission Date: 20140127
  Serious: Yes (Other)
  Sender: FDA-Public Use
  Company Number: PHHY2013JP002670

PATIENT
  Sex: 0

DRUGS (1)
  1. COMTAN [Suspect]
     Dosage: 100 MG, DAILY
     Route: 048

REACTIONS (2)
  - Cardio-respiratory arrest [Unknown]
  - Blood creatine phosphokinase increased [Unknown]
